FAERS Safety Report 8037874-1 (Version None)
Quarter: 2012Q1

REPORT INFORMATION
  Report Type: 
  Country: None (occurrence: None)
  Receive Date: 20120111
  Receipt Date: 20120105
  Transmission Date: 20120608
  Serious: Yes (Other)
  Sender: FDA-Public Use
  Company Number: CA-ROCHE-1005435

PATIENT
  Sex: Male

DRUGS (5)
  1. SINGULAIR [Concomitant]
  2. VENTOLIN [Concomitant]
  3. XOLAIR [Suspect]
     Indication: ASTHMA
     Route: 058
     Dates: start: 20110812
  4. ALVESCO [Concomitant]
  5. DESLORATADINE [Concomitant]

REACTIONS (5)
  - VIRAL INFECTION [None]
  - COUGH [None]
  - BLOOD PRESSURE INCREASED [None]
  - DYSPNOEA [None]
  - VERTIGO [None]
